FAERS Safety Report 7643166-2 (Version None)
Quarter: 2011Q3

REPORT INFORMATION
  Report Type: 
  Country: None (occurrence: None)
  Receive Date: 20110729
  Receipt Date: 20110720
  Transmission Date: 20111222
  Serious: Yes (Hospitalization)
  Sender: FDA-Public Use
  Company Number: AR-BIOGENIDEC-2011BI017244

PATIENT
  Age: 49 Year
  Sex: Female

DRUGS (1)
  1. AVONEX [Suspect]
     Indication: MULTIPLE SCLEROSIS
     Route: 030
     Dates: start: 20100201

REACTIONS (6)
  - SYNCOPE [None]
  - MUSCULAR WEAKNESS [None]
  - PALPITATIONS [None]
  - HEADACHE [None]
  - VISION BLURRED [None]
  - BREAST CANCER [None]
